FAERS Safety Report 5156844-4 (Version None)
Quarter: 2006Q4

REPORT INFORMATION
  Report Type: 
  Country: None (occurrence: None)
  Receive Date: 20061115
  Receipt Date: 20061102
  Transmission Date: 20070319
  Serious: Yes (Other)
  Sender: FDA-Public Use
  Company Number: 2006126913

PATIENT
  Age: 42 Year
  Sex: Female
  Weight: 94 kg

DRUGS (2)
  1. GENOTROPIN [Suspect]
     Indication: GROWTH HORMONE DEFICIENCY
     Dosage: 0.2 MG (0.2 MG, DAILY), SUBCUTANEOUS; 0.4 MG (0.4 MG, DAILY), SUBCUTANEOUS
     Route: 058
     Dates: start: 20050804
  2. ISOPTIN [Concomitant]

REACTIONS (1)
  - NEOPLASM RECURRENCE [None]
